FAERS Safety Report 17368449 (Version 3)
Quarter: 2020Q3

REPORT INFORMATION
  Report Type: Spontaneous
  Country: SE (occurrence: SE)
  Receive Date: 20200204
  Receipt Date: 20200831
  Transmission Date: 20201102
  Serious: Yes (Death)
  Sender: FDA-Public Use
  Company Number: SE-009507513-2001SWE010500

PATIENT
  Age: 85 Year
  Sex: Female

DRUGS (7)
  1. KEYTRUDA [Suspect]
     Active Substance: PEMBROLIZUMAB
     Indication: LUNG NEOPLASM MALIGNANT
     Dosage: TREATMENT NUMBER 1
     Route: 042
     Dates: start: 20191204, end: 20191204
  2. ALVEDON [Concomitant]
     Active Substance: ACETAMINOPHEN
     Dosage: AS NECESSARY
     Dates: start: 20150224
  3. OMEPRAZOLE MAGNESIUM. [Concomitant]
     Active Substance: OMEPRAZOLE MAGNESIUM
     Dosage: 40 MILLIGRAM, QD
     Dates: start: 20120131
  4. ACETYLCYSTEINE. [Concomitant]
     Active Substance: ACETYLCYSTEINE
     Dosage: AS NECESSARY
     Dates: start: 20090612
  5. TROMBYL [Concomitant]
     Active Substance: ASPIRIN
     Dosage: 75 MILLIGRAM,QD
     Dates: start: 20141216
  6. FURIX [Concomitant]
     Dosage: UNK, AS NECESSARY
     Dates: start: 20090827
  7. VENTOLINE (ALBUTEROL SULFATE) [Concomitant]
     Active Substance: ALBUTEROL SULFATE
     Dosage: AS NECESSARY
     Route: 055
     Dates: start: 20090827

REACTIONS (2)
  - Myocardial infarction [Fatal]
  - Diabetic ketoacidosis [Fatal]

NARRATIVE: CASE EVENT DATE: 20191227
